FAERS Safety Report 21687561 (Version 1)
Quarter: 2022Q4

REPORT INFORMATION
  Report Type: Report from Study
  Country: AU (occurrence: AU)
  Receive Date: 20221206
  Receipt Date: 20221206
  Transmission Date: 20230113
  Serious: Yes (Other)
  Sender: FDA-Public Use
  Company Number: AU-SUN PHARMACEUTICAL INDUSTRIES LTD-2022RR-367325

PATIENT
  Age: 16 Year
  Sex: Male

DRUGS (10)
  1. LURASIDONE [Suspect]
     Active Substance: LURASIDONE
     Indication: Anger
     Dosage: UNK
     Route: 065
  2. LURASIDONE [Suspect]
     Active Substance: LURASIDONE
     Indication: Irritability
  3. RISPERIDONE [Suspect]
     Active Substance: RISPERIDONE
     Indication: Irritability
     Dosage: 2 MILLIGRAM, DAILY, FOR 3 YEARS
     Route: 065
  4. RISPERIDONE [Suspect]
     Active Substance: RISPERIDONE
     Indication: Anger
  5. TOPIRAMATE [Suspect]
     Active Substance: TOPIRAMATE
     Indication: Irritability
     Dosage: UNK
     Route: 065
  6. TOPIRAMATE [Suspect]
     Active Substance: TOPIRAMATE
     Indication: Anger
  7. FLUOXETINE [Suspect]
     Active Substance: FLUOXETINE HYDROCHLORIDE
     Indication: Irritability
     Dosage: UNK
     Route: 065
  8. FLUOXETINE [Suspect]
     Active Substance: FLUOXETINE HYDROCHLORIDE
     Indication: Anger
  9. MELATONIN [Suspect]
     Active Substance: MELATONIN
     Indication: Anger
     Dosage: UNK
     Route: 065
  10. MELATONIN [Suspect]
     Active Substance: MELATONIN
     Indication: Irritability

REACTIONS (3)
  - Drug ineffective [Unknown]
  - Rebound effect [Unknown]
  - Weight increased [Unknown]
